FAERS Safety Report 8914710 (Version 2)
Quarter: 2013Q1

REPORT INFORMATION
  Report Type: Spontaneous
  Country: JP (occurrence: JP)
  Receive Date: 20121119
  Receipt Date: 20130114
  Transmission Date: 20140127
  Serious: No
  Sender: FDA-Public Use
  Company Number: JP-ALLERGAN-1214029US

PATIENT
  Age: 3 Year
  Sex: Male

DRUGS (4)
  1. BOTOX [Suspect]
     Indication: CEREBRAL PALSY
     Dosage: 70 UNITS, SINGLE
     Route: 030
     Dates: start: 20110714, end: 20110714
  2. BOTOX [Suspect]
     Indication: MUSCLE SPASMS
     Dosage: 60 UNITS, SINGLE
     Route: 030
     Dates: start: 20120119, end: 20120119
  3. BOTOX [Suspect]
     Dosage: 60 UNITS, SINGLE
     Route: 030
     Dates: start: 20120621, end: 20120621
  4. GABALON [Concomitant]
     Indication: PRODUCT USED FOR UNKNOWN INDICATION

REACTIONS (1)
  - Micturition disorder [Recovered/Resolved]
